FAERS Safety Report 17992739 (Version 1)
Quarter: 2020Q3

REPORT INFORMATION
  Report Type: Report from Study
  Country: MX (occurrence: MX)
  Receive Date: 20200707
  Receipt Date: 20200707
  Transmission Date: 20201103
  Serious: Yes (Other)
  Sender: FDA-Public Use
  Company Number: NVSC2020MX191152

PATIENT
  Age: 41 Year
  Sex: Male
  Weight: 90 kg

DRUGS (2)
  1. TEGRETOL [Suspect]
     Active Substance: CARBAMAZEPINE
     Indication: PROPHYLAXIS
     Dosage: 0.5 DF, BID (200MG)
     Route: 048
     Dates: start: 200708, end: 20191203
  2. ASPIRIN. [Concomitant]
     Active Substance: ASPIRIN
     Indication: THROMBOSIS
     Dosage: 95 MG, QD
     Route: 048
     Dates: start: 201307

REACTIONS (2)
  - Off label use [Unknown]
  - Infarction [Not Recovered/Not Resolved]

NARRATIVE: CASE EVENT DATE: 20130609
